FAERS Safety Report 5217105-8 (Version None)
Quarter: 2007Q1

REPORT INFORMATION
  Report Type: 
  Country: None (occurrence: None)
  Receive Date: 20070119
  Receipt Date: 20070115
  Transmission Date: 20070707
  Serious: Yes (Life-Threatening, Hospitalization)
  Sender: FDA-Public Use
  Company Number: 2007-00104

PATIENT
  Age: 76 Year
  Sex: Female
  Weight: 68 kg

DRUGS (37)
  1. VELCADE [Suspect]
     Indication: MULTIPLE MYELOMA
     Dosage: 1.00 MG/M2, INTRAVENOUS
     Route: 042
     Dates: start: 20061211, end: 20070111
  2. DEXAMETHASONE [Suspect]
     Indication: MULTIPLE MYELOMA
     Dosage: 4.00 MG, ORAL
     Route: 048
     Dates: start: 20061211, end: 20070108
  3. LASIX [Concomitant]
  4. DIGOXIN [Concomitant]
  5. MS CONTIN [Concomitant]
  6. TIMENTIN (TICARCILLIN DISODIUM, CLAVULANIC ACID) [Concomitant]
  7. GTN (GLYCERYL TRINITRATE) PATCH [Concomitant]
  8. NYSTATIN [Concomitant]
  9. COLOXYL WITH SENNA (SENNOSIDE A+B, DOCUSATE SODIUM) [Concomitant]
  10. VENTOLIN [Concomitant]
  11. FENTANYL [Concomitant]
  12. MAXOLON [Concomitant]
  13. ONDASETRON (ONDANSETRON) [Concomitant]
  14. HYDROCORTISONE [Concomitant]
  15. PHENERGAN (PROMETHAZINE HYDROCHLORIDE) [Concomitant]
  16. MORPHINE [Concomitant]
  17. ARTIFICIAL SALIVA [Concomitant]
  18. DEXAMETHASONE [Concomitant]
  19. CHLORVESCENT (POTASSIUM CHLORIDE) [Concomitant]
  20. TEMAZEPAM [Concomitant]
  21. MICROLAX (SODIUM CITRATE, SODIUM LAURYL SULFOACETATE) [Concomitant]
  22. INSULIN [Concomitant]
  23. GENTAMICIN [Concomitant]
  24. ACETAMINOPHEN [Concomitant]
  25. PANTOPRAZOLE SODIUM [Concomitant]
  26. OMEPRAZOLE [Concomitant]
  27. POTASSIUM CHLORIDE [Concomitant]
  28. MAGNESIUM ASPARTATE (MAGNESIUM ASPARTATE) [Concomitant]
  29. OXYCODONE HYDROCHLORIDE (OXYCODONE HYDROCHLORIDE) LIQUID [Concomitant]
  30. VALACYCLOVIR [Concomitant]
  31. XYLOCAINE VISCOUS [Concomitant]
  32. AUGMENTIN DUO FORTE (CLAVULANATE POTASSIUM, AMOXICILLIN TRIHYDRATE) [Concomitant]
  33. CIPROFLOXACIN [Concomitant]
  34. CALCIUM CARBONATE (CALCIUM CARBONATE) [Concomitant]
  35. ALLOPURINOL [Concomitant]
  36. INTRAGAM (IMMUNOGLOBULIN HUMAN NORMAL) [Concomitant]
  37. LORAZEPAM [Concomitant]

REACTIONS (5)
  - ASPIRATION [None]
  - BRONCHOPNEUMONIA [None]
  - LOWER RESPIRATORY TRACT INFECTION [None]
  - RENAL FAILURE ACUTE [None]
  - TROPONIN I INCREASED [None]
